FAERS Safety Report 8643713 (Version 4)
Quarter: 2012Q4

REPORT INFORMATION
  Report Type: Report from Study
  Country: US (occurrence: US)
  Receive Date: 20120629
  Receipt Date: 20120922
  Transmission Date: 20130627
  Serious: Yes (Hospitalization)
  Sender: FDA-Public Use
  Company Number: US-ABBOTT-12P-163-0947682-00

PATIENT
  Age: 72 Year
  Sex: Female

DRUGS (16)
  1. HUMIRA 40 MG/0.8 ML PEN [Suspect]
     Indication: PSORIASIS
     Dates: start: 201001
  2. HUMIRA 40 MG/0.8 ML PEN [Suspect]
     Dosage: for 4 weeks
     Dates: end: 201107
  3. HUMIRA 40 MG/0.8 ML PEN [Suspect]
     Dates: start: 20120608
  4. TYLENOL [Concomitant]
     Indication: PRODUCT USED FOR UNKNOWN INDICATION
  5. VARIOUS CREAMS [Concomitant]
     Indication: PSORIASIS
  6. HCTZ [Concomitant]
     Indication: HYPERTENSION
  7. HCTZ [Concomitant]
     Indication: JOINT SWELLING
  8. HCTZ [Concomitant]
     Indication: OEDEMA PERIPHERAL
  9. DICLOFENAC [Concomitant]
     Indication: ARTHRITIS
  10. VITAMIN D [Concomitant]
     Indication: PRODUCT USED FOR UNKNOWN INDICATION
     Dosage: 50000 unit weekly
  11. SERTALINE [Concomitant]
     Indication: DEPRESSION
     Dosage: 1 and 1/2 tab once daily
  12. SPIRIVA [Concomitant]
     Indication: CHRONIC OBSTRUCTIVE PULMONARY DISEASE
  13. COMBIVENT [Concomitant]
     Indication: CHRONIC OBSTRUCTIVE PULMONARY DISEASE
     Route: 055
  14. METRONIDAZOLE [Concomitant]
     Indication: PRODUCT USED FOR UNKNOWN INDICATION
     Dates: end: 20120507
  15. TRIAMCINOLONE [Concomitant]
     Indication: PSORIASIS
     Dosage: Daily
  16. HYDROCORTISONE [Concomitant]
     Indication: VULVOVAGINAL PRURITUS
     Route: 061

REACTIONS (17)
  - Chronic obstructive pulmonary disease [Recovered/Resolved]
  - Dehydration [Not Recovered/Not Resolved]
  - Dyspnoea [Unknown]
  - Pneumonia [Recovered/Resolved]
  - Psoriasis [Not Recovered/Not Resolved]
  - Respiratory disorder [Unknown]
  - Sleep disorder [Unknown]
  - Pain in extremity [Unknown]
  - Fear [Unknown]
  - Immune system disorder [Unknown]
  - Psoriasis [Not Recovered/Not Resolved]
  - Herpes zoster [Not Recovered/Not Resolved]
  - Musculoskeletal pain [Not Recovered/Not Resolved]
  - Vitamin D decreased [Unknown]
  - Pain in extremity [Unknown]
  - Depression [Unknown]
  - Feeling abnormal [Unknown]
